FAERS Safety Report 8291218-9 (Version None)
Quarter: 2012Q2

REPORT INFORMATION
  Report Type: 
  Country: None (occurrence: None)
  Receive Date: 20120417
  Receipt Date: 20120409
  Transmission Date: 20120825
  Serious: Yes (Other)
  Sender: FDA-Public Use
  Company Number: US-BAYER-2012-034619

PATIENT
  Age: 15 Year
  Sex: Female

DRUGS (2)
  1. DROSPIRENONE AND ETHINYL ESTRADIOL [Suspect]
     Dosage: UNK
     Dates: start: 20081001, end: 20081201
  2. YAZ [Suspect]
     Dosage: UNK
     Dates: start: 20080101, end: 20081001

REACTIONS (1)
  - DEEP VEIN THROMBOSIS [None]
